FAERS Safety Report 16731484 (Version 3)
Quarter: 2020Q1

REPORT INFORMATION
  Report Type: Report from Study
  Country: IL (occurrence: IL)
  Receive Date: 20190822
  Receipt Date: 20200211
  Transmission Date: 20200409
  Serious: Yes (Hospitalization)
  Sender: FDA-Public Use
  Company Number: IL-EISAI MEDICAL RESEARCH-EC-2019-060990

PATIENT
  Age: 70 Year
  Sex: Male
  Weight: 91.9 kg

DRUGS (25)
  1. MAGNESIUM [Concomitant]
     Active Substance: MAGNESIUM
     Dates: start: 200701
  2. PEMBROLIZUMAB. [Suspect]
     Active Substance: PEMBROLIZUMAB
     Route: 041
     Dates: start: 20190925
  3. ASPIRIN. [Concomitant]
     Active Substance: ASPIRIN
     Dates: start: 200908, end: 20190814
  4. SODIUM CHLORIDE. [Concomitant]
     Active Substance: SODIUM CHLORIDE
     Dates: start: 20190801, end: 20190801
  5. CISPLATIN. [Suspect]
     Active Substance: CISPLATIN
     Indication: NON-SMALL CELL LUNG CANCER METASTATIC
     Route: 041
     Dates: start: 20190801, end: 20190801
  6. PEMETREXED. [Suspect]
     Active Substance: PEMETREXED
     Indication: NON-SMALL CELL LUNG CANCER METASTATIC
     Route: 041
     Dates: start: 20190801, end: 20190801
  7. CALCIUM [Concomitant]
     Active Substance: CALCIUM
     Dates: start: 20190708
  8. ROSUVASTATIN. [Concomitant]
     Active Substance: ROSUVASTATIN
     Dates: start: 201706
  9. LENVATINIB [Suspect]
     Active Substance: LENVATINIB
     Indication: NON-SMALL CELL LUNG CANCER METASTATIC
     Route: 048
     Dates: start: 20190801
  10. FENTA [Concomitant]
     Dates: start: 20190801
  11. DEXAMETHASONE SODIUM PHOSPHATE. [Concomitant]
     Active Substance: DEXAMETHASONE SODIUM PHOSPHATE
     Dates: start: 20190801, end: 20190801
  12. PEMETREXED. [Suspect]
     Active Substance: PEMETREXED
     Route: 041
     Dates: start: 20190925
  13. FOLIC ACID. [Concomitant]
     Active Substance: FOLIC ACID
     Dates: start: 20190708
  14. FUROSEMIDE. [Concomitant]
     Active Substance: FUROSEMIDE
     Dates: start: 20190801, end: 20190801
  15. AKYNZEO [Concomitant]
     Active Substance: NETUPITANT\PALONOSETRON HYDROCHLORIDE
     Route: 048
     Dates: start: 20190801, end: 20190801
  16. CISPLATIN. [Suspect]
     Active Substance: CISPLATIN
     Route: 041
     Dates: start: 20190925
  17. PEMETREXED. [Suspect]
     Active Substance: PEMETREXED
     Route: 041
     Dates: start: 20190822, end: 20190822
  18. PEMBROLIZUMAB. [Suspect]
     Active Substance: PEMBROLIZUMAB
     Indication: NON-SMALL CELL LUNG CANCER METASTATIC
     Route: 041
     Dates: start: 20190801, end: 20190801
  19. LOSARTAN. [Concomitant]
     Active Substance: LOSARTAN
     Dates: start: 201902
  20. ALLOPURINOL. [Concomitant]
     Active Substance: ALLOPURINOL
     Dates: start: 201808
  21. UBIDECARENONE [Concomitant]
     Active Substance: UBIDECARENONE
     Dates: start: 201701
  22. TELIXIR 10 [Concomitant]
  23. CISPLATIN. [Suspect]
     Active Substance: CISPLATIN
     Route: 041
     Dates: start: 20190822, end: 20190822
  24. PEMBROLIZUMAB. [Suspect]
     Active Substance: PEMBROLIZUMAB
     Route: 041
     Dates: start: 20190822, end: 20190822
  25. XGEVA [Concomitant]
     Active Substance: DENOSUMAB
     Dates: start: 20190715

REACTIONS (3)
  - Pneumonia [Recovered/Resolved]
  - Pyrexia [Recovered/Resolved]
  - Neutrophil count decreased [Recovered/Resolved]

NARRATIVE: CASE EVENT DATE: 20190813
